FAERS Safety Report 6252022-6 (Version None)
Quarter: 2009Q2

REPORT INFORMATION
  Report Type: 
  Country: None (occurrence: None)
  Receive Date: 20090630
  Receipt Date: 20070619
  Transmission Date: 20091009
  Serious: Yes (Death, Hospitalization)
  Sender: FDA-Public Use
  Company Number: US-ROCHE-638543

PATIENT
  Sex: Female

DRUGS (11)
  1. ENFUVIRTIDE [Suspect]
     Route: 065
     Dates: start: 20060224, end: 20070929
  2. NORVIR [Concomitant]
     Dates: start: 20020502, end: 20060119
  3. NORVIR [Concomitant]
     Dates: start: 20060119, end: 20070929
  4. NORVIR [Concomitant]
     Dates: start: 20070912, end: 20070929
  5. APTIVUS [Concomitant]
     Dates: start: 20060224, end: 20070929
  6. TRUVADA [Concomitant]
     Dosage: FREQUENCY: QD
     Dates: start: 20060224, end: 20070929
  7. BACTRIM DS [Concomitant]
     Dosage: FREQUENCY: QD
     Dates: start: 20051207, end: 20060616
  8. BACTRIM DS [Concomitant]
     Dates: start: 20070403, end: 20070418
  9. ZITHROMAX [Concomitant]
     Dates: start: 20060601, end: 20060601
  10. ZITHROMAX [Concomitant]
     Dosage: FREQUENCY: QD
     Dates: start: 20070320, end: 20070320
  11. ZITHROMAX [Concomitant]
     Dosage: FREQUENCY: QD
     Dates: start: 20070321, end: 20070325

REACTIONS (7)
  - AIDS ENCEPHALOPATHY [None]
  - ATAXIA [None]
  - CARDIO-RESPIRATORY ARREST [None]
  - CEREBROVASCULAR ACCIDENT [None]
  - DYSARTHRIA [None]
  - HIV INFECTION [None]
  - RESPIRATORY ARREST [None]
